FAERS Safety Report 11234992 (Version 1)
Quarter: 2015Q3

REPORT INFORMATION
  Report Type: Spontaneous
  Country: US (occurrence: US)
  Receive Date: 20150702
  Receipt Date: 20150702
  Transmission Date: 20151125
  Serious: Yes (Other)
  Sender: FDA-Public Use
  Company Number: US-ASTRAZENECA-2015SE62801

PATIENT
  Sex: Male
  Weight: 90.7 kg

DRUGS (12)
  1. CRESTOR [Suspect]
     Active Substance: ROSUVASTATIN CALCIUM
     Indication: MYOCARDIAL INFARCTION
     Dosage: 40 MG 2 DAYS A WEEK
     Route: 048
  2. CRESTOR [Suspect]
     Active Substance: ROSUVASTATIN CALCIUM
     Indication: CARDIAC OPERATION
     Dosage: 40 MG TABLETS IN HALF TO CREATE A 20 MG DOSE
     Route: 048
  3. CRESTOR [Suspect]
     Active Substance: ROSUVASTATIN CALCIUM
     Indication: MYOCARDIAL INFARCTION
     Dosage: 40 MG TABLETS IN HALF TO CREATE A 20 MG DOSE
     Route: 048
  4. CRESTOR [Suspect]
     Active Substance: ROSUVASTATIN CALCIUM
     Indication: CARDIAC OPERATION
     Route: 048
     Dates: start: 2009
  5. CRESTOR [Suspect]
     Active Substance: ROSUVASTATIN CALCIUM
     Indication: MYOCARDIAL INFARCTION
     Route: 048
  6. CRESTOR [Suspect]
     Active Substance: ROSUVASTATIN CALCIUM
     Indication: CARDIAC OPERATION
     Dosage: 40 MG 2 DAYS A WEEK
     Route: 048
  7. CRESTOR [Suspect]
     Active Substance: ROSUVASTATIN CALCIUM
     Indication: MYOCARDIAL INFARCTION
     Route: 048
     Dates: start: 2008
  8. CRESTOR [Suspect]
     Active Substance: ROSUVASTATIN CALCIUM
     Indication: MYOCARDIAL INFARCTION
     Dosage: 20 MG 5 DAYS A WEEK
     Route: 048
  9. CRESTOR [Suspect]
     Active Substance: ROSUVASTATIN CALCIUM
     Indication: CARDIAC OPERATION
     Route: 048
     Dates: start: 2008
  10. CRESTOR [Suspect]
     Active Substance: ROSUVASTATIN CALCIUM
     Indication: MYOCARDIAL INFARCTION
     Route: 048
     Dates: start: 2009
  11. CRESTOR [Suspect]
     Active Substance: ROSUVASTATIN CALCIUM
     Indication: CARDIAC OPERATION
     Route: 048
  12. CRESTOR [Suspect]
     Active Substance: ROSUVASTATIN CALCIUM
     Indication: CARDIAC OPERATION
     Dosage: 20 MG 5 DAYS A WEEK
     Route: 048

REACTIONS (8)
  - Pain in extremity [Unknown]
  - Body height decreased [Unknown]
  - Memory impairment [Unknown]
  - Intentional product misuse [Unknown]
  - Cerebrovascular accident [Unknown]
  - Product use issue [Unknown]
  - Intervertebral disc degeneration [Unknown]
  - Liver disorder [Unknown]
